FAERS Safety Report 12110401 (Version 2)
Quarter: 2016Q2

REPORT INFORMATION
  Report Type: Spontaneous
  Country: US (occurrence: US)
  Receive Date: 20160224
  Receipt Date: 20160428
  Transmission Date: 20160815
  Serious: Yes (Death)
  Sender: FDA-Public Use
  Company Number: US-TEVA-636520USA

PATIENT
  Sex: Female

DRUGS (14)
  1. OXYCODONE [Concomitant]
     Active Substance: OXYCODONE
  2. FENTORA [Suspect]
     Active Substance: FENTANYL CITRATE
     Indication: PRODUCT USED FOR UNKNOWN INDICATION
     Route: 065
  3. BENADRYL [Concomitant]
     Active Substance: DIPHENHYDRAMINE HYDROCHLORIDE
  4. HYDROMORPHONE [Concomitant]
     Active Substance: HYDROMORPHONE
  5. LORAZEPAM. [Concomitant]
     Active Substance: LORAZEPAM
  6. TAXOL [Concomitant]
     Active Substance: PACLITAXEL
  7. ZOFRAN [Concomitant]
     Active Substance: ONDANSETRON HYDROCHLORIDE
  8. IBUPROFEN. [Concomitant]
     Active Substance: IBUPROFEN
  9. LEVAQUIN [Concomitant]
     Active Substance: LEVOFLOXACIN
  10. CARBOPLATIN. [Concomitant]
     Active Substance: CARBOPLATIN
  11. PARAPLATIN [Concomitant]
     Active Substance: CARBOPLATIN
  12. DEXAMETHASONE. [Concomitant]
     Active Substance: DEXAMETHASONE
  13. LYRICA [Concomitant]
     Active Substance: PREGABALIN
  14. TRAMADOL. [Concomitant]
     Active Substance: TRAMADOL

REACTIONS (2)
  - Cervix carcinoma [Fatal]
  - Metastatic neoplasm [Fatal]
